FAERS Safety Report 9088020 (Version 1)
Quarter: 2013Q1

REPORT INFORMATION
  Report Type: Report from Study
  Country: US (occurrence: US)
  Receive Date: 20130201
  Receipt Date: 20130201
  Transmission Date: 20140127
  Serious: No
  Sender: FDA-Public Use
  Company Number: US-ABBOTT-12P-163-1024844-00

PATIENT
  Age: 32 Year
  Sex: Female

DRUGS (4)
  1. HUMIRA [Suspect]
     Indication: PSORIATIC ARTHROPATHY
     Dates: start: 20121206
  2. CELEXA [Concomitant]
     Indication: ANXIETY
     Dosage: 20MG DAILY
  3. TRAZODONE [Concomitant]
     Indication: INSOMNIA
     Dosage: AT BEDTIME
  4. ACYCLOVIR [Concomitant]
     Indication: HERPES SIMPLEX

REACTIONS (4)
  - Injection site cellulitis [Recovered/Resolved]
  - Urticaria [Unknown]
  - Pain [Unknown]
  - Pruritus [Unknown]
